FAERS Safety Report 25593588 (Version 1)
Quarter: 2025Q3

REPORT INFORMATION
  Report Type: Report from Study
  Country: US (occurrence: US)
  Receive Date: 20250722
  Receipt Date: 20250722
  Transmission Date: 20251021
  Serious: Yes (Disabling, Other)
  Sender: ALEXION PHARMACEUTICALS
  Company Number: US-ASTRAZENECA-202507USA015773US

PATIENT
  Age: 46 Year
  Sex: Female

DRUGS (1)
  1. STRENSIQ [Suspect]
     Active Substance: ASFOTASE ALFA
     Indication: Phosphorus metabolism disorder
     Dosage: 160 MILLIGRAM, TIW
     Route: 065

REACTIONS (7)
  - Barrett^s oesophagus [Unknown]
  - Disability [Unknown]
  - Bone pain [Unknown]
  - Pain in extremity [Unknown]
  - Musculoskeletal discomfort [Unknown]
  - Fatigue [Unknown]
  - Albumin globulin ratio decreased [Unknown]

NARRATIVE: CASE EVENT DATE: 20240101
